FAERS Safety Report 4389590-5 (Version None)
Quarter: 2004Q3

REPORT INFORMATION
  Report Type: 
  Country: None (occurrence: None)
  Receive Date: 20040702
  Receipt Date: 20030714
  Transmission Date: 20050211
  Serious: Yes (Hospitalization)
  Sender: FDA-Public Use
  Company Number: JP-MERCK-0307USA02145

PATIENT
  Age: 59 Year
  Sex: Male
  Weight: 64 kg

DRUGS (3)
  1. CLARITHROMYCIN [Concomitant]
     Indication: CHRONIC SINUSITIS
     Route: 048
     Dates: start: 19930901
  2. FLUTICASONE PROPIONATE [Concomitant]
     Indication: ASTHMA
     Route: 065
     Dates: start: 20021101
  3. SINGULAIR [Suspect]
     Indication: ASTHMA
     Route: 048
     Dates: start: 20030617, end: 20030626

REACTIONS (4)
  - EOSINOPHILIC PNEUMONIA ACUTE [None]
  - HEADACHE [None]
  - LUNG NEOPLASM [None]
  - LYMPHOCYTE STIMULATION TEST POSITIVE [None]
